FAERS Safety Report 25430594 (Version 1)
Quarter: 2025Q2

REPORT INFORMATION
  Report Type: Spontaneous
  Country: CN (occurrence: CN)
  Receive Date: 20250612
  Receipt Date: 20250612
  Transmission Date: 20250716
  Serious: Yes (Death)
  Sender: NOVARTIS
  Company Number: CN-002147023-NVSC2025CN094414

PATIENT

DRUGS (1)
  1. EVEROLIMUS [Suspect]
     Active Substance: EVEROLIMUS
     Indication: MELAS syndrome
     Route: 065

REACTIONS (3)
  - MELAS syndrome [Fatal]
  - Condition aggravated [Fatal]
  - Drug ineffective for unapproved indication [Fatal]
